FAERS Safety Report 9410590 (Version 1)
Quarter: 2013Q3

REPORT INFORMATION
  Report Type: Spontaneous
  Country: GB (occurrence: GB)
  Receive Date: 20130719
  Receipt Date: 20130719
  Transmission Date: 20140515
  Serious: Yes (Hospitalization)
  Sender: FDA-Public Use
  Company Number: GB-WATSON-2013-12710

PATIENT
  Age: 59 Year
  Sex: 0

DRUGS (8)
  1. TRIMETHOPRIM [Suspect]
     Indication: PRODUCT USED FOR UNKNOWN INDICATION
     Dosage: 200 MG, BID
     Route: 048
     Dates: start: 20100916, end: 20100919
  2. TRIMETHOPRIM [Suspect]
     Dosage: 200 MG, UNKNOWN
     Route: 065
     Dates: start: 20110701, end: 20110706
  3. CIPROFLOXACIN HYDROCHLORIDE (UNKNOWN) [Suspect]
     Indication: PRODUCT USED FOR UNKNOWN INDICATION
     Dosage: UNK UNK, UNKNOWN
     Route: 048
     Dates: start: 20110823
  4. CIPROFLOXACIN HYDROCHLORIDE (UNKNOWN) [Suspect]
     Dosage: 500 MG, BID
     Route: 048
     Dates: start: 20101229, end: 20110105
  5. CLARITHROMYCIN (UNKNOWN) [Suspect]
     Indication: PRODUCT USED FOR UNKNOWN INDICATION
     Dosage: 500 MG, BID
     Route: 065
     Dates: start: 20110107, end: 20110117
  6. AMOXICILLIN-CLAVULANATE (UNKNOWN) [Suspect]
     Indication: PRODUCT USED FOR UNKNOWN INDICATION
     Dosage: UNK, UNKNOWN
     Route: 065
     Dates: start: 20110609, end: 20110627
  7. TAZOCIN [Suspect]
     Indication: PRODUCT USED FOR UNKNOWN INDICATION
     Dosage: PIPERACILLIN 4G/ TAZOBACTAM 500MG4.5G TAZOCIN.
     Route: 042
  8. GENTAMICIN [Concomitant]
     Indication: PRODUCT USED FOR UNKNOWN INDICATION
     Dosage: STAT DOSE
     Route: 065

REACTIONS (1)
  - Clostridium difficile infection [Unknown]
